FAERS Safety Report 8228980-7 (Version None)
Quarter: 2012Q1

REPORT INFORMATION
  Report Type: 
  Country: None (occurrence: None)
  Receive Date: 20120322
  Receipt Date: 20120313
  Transmission Date: 20120608
  Serious: Yes (Hospitalization)
  Sender: FDA-Public Use
  Company Number: DE-ROCHE-1049281

PATIENT
  Sex: Female
  Weight: 46 kg

DRUGS (3)
  1. HERCEPTIN [Suspect]
     Indication: GASTRIC CANCER
     Route: 042
     Dates: start: 20110912, end: 20120117
  2. XELODA [Suspect]
     Indication: GASTRIC CANCER
     Route: 048
     Dates: start: 20110912, end: 20120130
  3. METOCLOPRAMIDE [Concomitant]
     Indication: NAUSEA
     Dosage: REPORTED AS: MCP RETARD
     Route: 048
     Dates: start: 20110912, end: 20120130

REACTIONS (1)
  - DEEP VEIN THROMBOSIS [None]
